FAERS Safety Report 19056935 (Version 1)
Quarter: 2021Q1

REPORT INFORMATION
  Report Type: Spontaneous
  Country: US (occurrence: US)
  Receive Date: 20210325
  Receipt Date: 20210325
  Transmission Date: 20210420
  Serious: No
  Sender: FDA-Public Use
  Company Number: US-BAYER-2021-108126

PATIENT
  Age: 79 Year
  Sex: Female

DRUGS (1)
  1. GADAVIST [Suspect]
     Active Substance: GADOBUTROL
     Indication: IMAGING PROCEDURE
     Dosage: 6.5 DF, ONCE
     Route: 042
     Dates: start: 20210312, end: 20210312

REACTIONS (2)
  - Vessel puncture site erythema [None]
  - Vessel puncture site swelling [None]

NARRATIVE: CASE EVENT DATE: 20210312
